FAERS Safety Report 8283474-8 (Version None)
Quarter: 2012Q2

REPORT INFORMATION
  Report Type: 
  Country: None (occurrence: None)
  Receive Date: 20120413
  Receipt Date: 20120329
  Transmission Date: 20120825
  Serious: Yes (Other)
  Sender: FDA-Public Use
  Company Number: CHPA2012US006544

PATIENT
  Age: 36 Year
  Sex: Female

DRUGS (2)
  1. EXCEDRIN (MIGRAINE) [Suspect]
     Indication: HEADACHE
     Dosage: 6 DF, QD
     Route: 048
     Dates: start: 20120201, end: 20120201
  2. EXCEDRIN (MIGRAINE) [Suspect]
     Dosage: UNK DF, UNK
     Route: 048

REACTIONS (7)
  - EYE SWELLING [None]
  - LIP SWELLING [None]
  - PRURITUS [None]
  - OVERDOSE [None]
  - ANGIOEDEMA [None]
  - URTICARIA [None]
  - RASH [None]
